FAERS Safety Report 9373919 (Version 1)
Quarter: 2013Q2

REPORT INFORMATION
  Report Type: Spontaneous
  Country: US (occurrence: US)
  Receive Date: 20130628
  Receipt Date: 20130628
  Transmission Date: 20140414
  Serious: No
  Sender: FDA-Public Use
  Company Number: US-B.I. PHARMACEUTICALS,INC./RIDGEFIELD-2013-BI-17978BP

PATIENT
  Age: 83 Year
  Sex: Male
  Weight: 59 kg

DRUGS (3)
  1. ZANTAC (RANITIDINE HYDROCHLORIDE) [Suspect]
     Indication: DIARRHOEA
     Route: 048
     Dates: start: 20130620, end: 20130620
  2. LIBRAX [Concomitant]
     Indication: DIARRHOEA
     Route: 048
  3. BROBIOTIC [Concomitant]
     Indication: DIARRHOEA
     Route: 048

REACTIONS (1)
  - Urticaria [Not Recovered/Not Resolved]
